FAERS Safety Report 4876355-0 (Version None)
Quarter: 2005Q4

REPORT INFORMATION
  Report Type: 
  Country: None (occurrence: None)
  Receive Date: 20051206
  Receipt Date: 20051013
  Transmission Date: 20060501
  Serious: No
  Sender: FDA-Public Use
  Company Number: USA0510110811

PATIENT
  Age: 54 Year
  Sex: Male
  Weight: 80 kg

DRUGS (1)
  1. CYMBALTA [Suspect]
     Indication: HYPOAESTHESIA
     Dosage: 30 MG DAY
     Dates: start: 20051011

REACTIONS (2)
  - IRRITABILITY [None]
  - SOCIAL AVOIDANT BEHAVIOUR [None]
